FAERS Safety Report 20469475 (Version 2)
Quarter: 2022Q1

REPORT INFORMATION
  Report Type: Spontaneous
  Country: VN (occurrence: VN)
  Receive Date: 20220214
  Receipt Date: 20220228
  Transmission Date: 20220423
  Serious: Yes (Death, Hospitalization, Other)
  Sender: FDA-Public Use
  Company Number: VN-AMGEN-VNMSP2022024279

PATIENT
  Sex: Female
  Weight: 45 kg

DRUGS (4)
  1. MVASI [Suspect]
     Active Substance: BEVACIZUMAB-AWWB
     Indication: Colorectal cancer metastatic
     Dosage: 7.5 MILLIGRAM/KG, Q3WK
     Route: 042
     Dates: end: 202201
  2. MVASI [Suspect]
     Active Substance: BEVACIZUMAB-AWWB
     Indication: Metastases to lung
  3. CAPECITABINE [Concomitant]
     Active Substance: CAPECITABINE
     Indication: Colorectal cancer metastatic
     Dosage: UNK
  4. OXALIPLATIN [Concomitant]
     Active Substance: OXALIPLATIN
     Indication: Colorectal cancer metastatic
     Dosage: UNK

REACTIONS (1)
  - Pneumocystis jirovecii pneumonia [Fatal]
